FAERS Safety Report 4783221-8 (Version None)
Quarter: 2005Q3

REPORT INFORMATION
  Report Type: 
  Country: None (occurrence: None)
  Receive Date: 20050929
  Receipt Date: 20050923
  Transmission Date: 20060218
  Serious: Yes (Hospitalization)
  Sender: FDA-Public Use
  Company Number: 2005UW14315

PATIENT
  Age: 57 Year
  Sex: Female
  Weight: 95.3 kg

DRUGS (7)
  1. SEROQUEL [Suspect]
     Indication: MOOD SWINGS
     Route: 048
  2. CARDIZEM [Concomitant]
  3. LOFIBRA [Concomitant]
  4. WELLBUTRIN XL [Concomitant]
  5. DEPAKOTE [Concomitant]
  6. DETROL [Concomitant]
  7. PROPRANOLOL [Concomitant]

REACTIONS (2)
  - GALLBLADDER DISORDER [None]
  - PANCREATITIS [None]
